FAERS Safety Report 13815293 (Version 1)
Quarter: 2017Q3

REPORT INFORMATION
  Report Type: Spontaneous
  Country: US (occurrence: US)
  Receive Date: 20170731
  Receipt Date: 20170731
  Transmission Date: 20171127
  Serious: No
  Sender: FDA-Public Use
  Company Number: US-BAUSCH-BL-2016-024746

PATIENT
  Sex: Female
  Weight: 72.64 kg

DRUGS (1)
  1. OPCON-A [Suspect]
     Active Substance: NAPHAZOLINE HYDROCHLORIDE\PHENIRAMINE MALEATE
     Indication: EYE PRURITUS
     Dosage: 1 TO 2 DROPS IN EACH EYE AS NEEDED,
     Route: 047

REACTIONS (1)
  - Vision blurred [Not Recovered/Not Resolved]
